FAERS Safety Report 22589270 (Version 2)
Quarter: 2024Q3

REPORT INFORMATION
  Report Type: Spontaneous
  Country: FR (occurrence: FR)
  Receive Date: 20230612
  Receipt Date: 20240703
  Transmission Date: 20241017
  Serious: Yes (Other)
  Sender: RANBAXY
  Company Number: FR-SUN PHARMACEUTICAL INDUSTRIES LTD-2023RR-393821

PATIENT
  Sex: Male

DRUGS (1)
  1. MORPHINE [Suspect]
     Active Substance: MORPHINE
     Indication: Pain
     Dosage: 1.8 MILLIGRAM, Q1H
     Route: 040

REACTIONS (4)
  - Respiratory depression [Recovered/Resolved]
  - Accidental overdose [Recovered/Resolved]
  - Product administration error [Recovered/Resolved]
  - Product prescribing error [Recovered/Resolved]
